FAERS Safety Report 10266049 (Version 1)
Quarter: 2014Q2

REPORT INFORMATION
  Report Type: Report from Study
  Country: CN (occurrence: CN)
  Receive Date: 20140627
  Receipt Date: 20140627
  Transmission Date: 20141212
  Serious: Yes (Death, Other)
  Sender: FDA-Public Use
  Company Number: CN-ASTELLAS-2014US007600

PATIENT
  Age: 59 Year
  Sex: Male

DRUGS (1)
  1. ERLOTINIB [Suspect]
     Indication: NON-SMALL CELL LUNG CANCER
     Route: 048
     Dates: start: 20111123

REACTIONS (4)
  - Cardiac failure [Fatal]
  - Lung cancer metastatic [Unknown]
  - Malignant neoplasm progression [Unknown]
  - Rash [Unknown]
